FAERS Safety Report 20578073 (Version 2)
Quarter: 2022Q1

REPORT INFORMATION
  Report Type: Spontaneous
  Country: US (occurrence: US)
  Receive Date: 20220310
  Receipt Date: 20220325
  Transmission Date: 20220423
  Serious: Yes (Hospitalization)
  Sender: FDA-Public Use
  Company Number: US-TEVA-2022-US-2014134

PATIENT
  Age: 8 Decade
  Sex: Male

DRUGS (6)
  1. TOBRAMYCIN [Interacting]
     Active Substance: TOBRAMYCIN
     Indication: Arthritis infective
     Dosage: FOUR 10CC TRAYS OF TOBRAMYCIN BEADS WERE PREPARED IN THE BACK TABLE WITH TOBRAMYCIN 1.2G PER TRAY...
     Route: 014
  2. TOBRAMYCIN [Interacting]
     Active Substance: TOBRAMYCIN
     Dosage: A CUSTOM FEMUR WAS HAND FASHIONED WITH ANTIBACTERIAL CEMENT WITH ADDED TOBRAMYCIN 3.6G PER SACK O...
     Route: 014
  3. TOBRAMYCIN [Interacting]
     Active Substance: TOBRAMYCIN
     Dosage: TOBRAMYCIN 9.6G WAS USED IN THE CEMENT AND TOBRAMYCIN 4.8G IN THE BEADS FOR A TOTAL OF 14.4G
     Route: 014
  4. VANCOMYCIN [Interacting]
     Active Substance: VANCOMYCIN
     Indication: Arthritis infective
     Route: 042
  5. CEFEPIME [Concomitant]
     Active Substance: CEFEPIME HYDROCHLORIDE
     Indication: Arthritis infective
     Route: 042
  6. GENTAMICIN [Concomitant]
     Active Substance: GENTAMICIN
     Indication: Arthritis infective
     Dosage: PRE-FABRICATED LARGE REMEDY TIBIAL ANTIBACTERIAL SPACER
     Route: 050

REACTIONS (2)
  - Acute kidney injury [Recovered/Resolved]
  - Drug interaction [Unknown]
